FAERS Safety Report 9769150 (Version 1)
Quarter: 2013Q4

REPORT INFORMATION
  Report Type: Report from Study
  Country: GB (occurrence: GB)
  Receive Date: 20131218
  Receipt Date: 20131218
  Transmission Date: 20140711
  Serious: Yes (Other)
  Sender: FDA-Public Use
  Company Number: GB-JNJFOC-20131205046

PATIENT
  Age: 39 Year
  Sex: Female
  Weight: 100 kg

DRUGS (3)
  1. USTEKINUMAB [Suspect]
     Indication: PSORIASIS
     Route: 058
     Dates: start: 20101210, end: 20120715
  2. CICLOSPORIN [Suspect]
     Indication: PRODUCT USED FOR UNKNOWN INDICATION
     Route: 065
     Dates: start: 20090628
  3. LOESTRIN [Suspect]
     Indication: PRODUCT USED FOR UNKNOWN INDICATION
     Route: 065
     Dates: start: 20100715

REACTIONS (4)
  - Arrested labour [Recovered/Resolved]
  - Peripartum haemorrhage [Unknown]
  - Wound infection [Unknown]
  - Maternal exposure before pregnancy [Recovered/Resolved]
